FAERS Safety Report 12987160 (Version 1)
Quarter: 2016Q4

REPORT INFORMATION
  Report Type: Other
  Country: GB (occurrence: GB)
  Receive Date: 20161130
  Receipt Date: 20161130
  Transmission Date: 20170207
  Serious: Yes (Other)
  Sender: FDA-Public Use
  Company Number: GB-ASTELLAS-2016US046381

PATIENT
  Age: 75 Year
  Sex: Female

DRUGS (1)
  1. BETMIGA [Suspect]
     Active Substance: MIRABEGRON
     Indication: HYPERTONIC BLADDER
     Dosage: 25 MG, SINGLE TABLET
     Route: 048
     Dates: start: 20161112, end: 20161112

REACTIONS (6)
  - Nausea [Unknown]
  - Headache [Unknown]
  - Troponin increased [Unknown]
  - Vomiting [Unknown]
  - Syncope [Recovered/Resolved]
  - Diarrhoea [Unknown]

NARRATIVE: CASE EVENT DATE: 20161112
